FAERS Safety Report 9842829 (Version 3)
Quarter: 2014Q2

REPORT INFORMATION
  Report Type: Spontaneous
  Country: NL (occurrence: NL)
  Receive Date: 20140124
  Receipt Date: 20140624
  Transmission Date: 20141212
  Serious: Yes (Other)
  Sender: FDA-Public Use
  Company Number: CHPA2014NL001022

PATIENT
  Age: 60 Year
  Sex: Male

DRUGS (2)
  1. OTRIVIN COLD + ALLERGY DECONGESTANT NASALSPRAY WITH MENTHOL [Suspect]
     Indication: NASAL CONGESTION
     Dosage: 1 DF, QD
     Route: 045
     Dates: start: 201109
  2. OTRIVIN COLD + ALLERGY DECONGESTANT NASALSPRAY WITH MENTHOL [Suspect]
     Dosage: 1 TO 2 DF, BID
     Route: 045
     Dates: start: 201109

REACTIONS (4)
  - Metastasis [Recovering/Resolving]
  - Poor quality sleep [Unknown]
  - Dyspnoea [Unknown]
  - Incorrect drug administration duration [Unknown]
